FAERS Safety Report 5797867-1 (Version None)
Quarter: 2008Q2

REPORT INFORMATION
  Report Type: 
  Country: None (occurrence: None)
  Receive Date: 20080601
  Receipt Date: 20080219
  Transmission Date: 20081010
  Serious: No
  Sender: FDA-Public Use
  Company Number: US200802000643

PATIENT
  Age: 63 Year
  Sex: Female
  Weight: 99.8 kg

DRUGS (17)
  1. BYETTA [Suspect]
     Indication: GLUCOSE TOLERANCE IMPAIRED
     Dosage: 5 UG, 2/D, SUBCUTANEOUS : 10 UG, 2/D, SUBCUTANEOUS
     Route: 058
     Dates: start: 20070626, end: 20070829
  2. BYETTA [Suspect]
     Indication: GLUCOSE TOLERANCE IMPAIRED
     Dosage: 5 UG, 2/D, SUBCUTANEOUS : 10 UG, 2/D, SUBCUTANEOUS
     Route: 058
     Dates: start: 20070829
  3. EXENATIDE PEN, DISPOSABLE DEVICE (EXENATIDE PEN) PEN,DISPOSABLE [Concomitant]
  4. UNIPHYL [Concomitant]
  5. ADVAIR DISKUS 100/50 [Concomitant]
  6. VENTOLIN (SALBUTAMOL SULFATE) [Concomitant]
  7. SINGULAIR [Concomitant]
  8. FLONASE [Concomitant]
  9. ASTELIN [Concomitant]
  10. XOLAIR [Concomitant]
  11. CLONIDINE [Concomitant]
  12. BENICAR [Concomitant]
  13. ERGOCALCIFEROL (ERGOCALCIFEROL) [Concomitant]
  14. EFFEXOR [Concomitant]
  15. INTAL [Concomitant]
  16. ADDERALL (AMFETAMINE ASPARTATE, AMFETAMINE SULFATE, DEXAMFETAMINE SACC [Concomitant]
  17. TRICOR [Concomitant]

REACTIONS (3)
  - MACULAR OEDEMA [None]
  - VISUAL ACUITY REDUCED [None]
  - WEIGHT DECREASED [None]
